FAERS Safety Report 7422810-9 (Version None)
Quarter: 2011Q2

REPORT INFORMATION
  Report Type: 
  Country: None (occurrence: None)
  Receive Date: 20110419
  Receipt Date: 20090606
  Transmission Date: 20111010
  Serious: Yes (Death, Hospitalization, Other)
  Sender: FDA-Public Use
  Company Number: US-BAYER-200922401NA

PATIENT
  Age: 74 Year
  Sex: Male
  Weight: 92.971 kg

DRUGS (24)
  1. PROPRANOLOL [Concomitant]
     Dosage: 20 MG, UNK
     Route: 048
  2. SEPTRA DS [Concomitant]
     Dosage: 800/160 UNK, UNK
     Route: 048
     Dates: start: 19990326
  3. TRASYLOL [Suspect]
     Indication: CORONARY ARTERY BYPASS
     Dosage: 100 ML, UNK
     Route: 042
     Dates: start: 19991210, end: 19991210
  4. PRIMACOR [Concomitant]
     Dosage: UNK
     Dates: start: 19991210
  5. ULTRAM [Concomitant]
     Dosage: 50 MG, UNK
     Route: 048
  6. PANCURONIUM BROMIDE [Concomitant]
     Dosage: UNK
     Dates: start: 19991210
  7. MIDAZOLAM [Concomitant]
     Dosage: UNK
     Dates: start: 19991210
  8. EPINEPHRINE [Concomitant]
     Dosage: UNK
     Dates: start: 19991210
  9. HEPARIN [Concomitant]
     Dosage: UNK
     Dates: start: 19991210
  10. CARDURA [Concomitant]
     Dosage: 2 MG, UNK
     Route: 048
  11. DELTASONE [Concomitant]
     Dosage: 5 MG, UNK
     Route: 048
  12. SEPTRA DS [Concomitant]
     Dosage: 800/160 UNK, UNK
     Dates: start: 19990610
  13. PAPAVERINE [Concomitant]
     Dosage: 90 MG, UNK
     Route: 042
     Dates: start: 19991210
  14. NORMAL SALINE [Concomitant]
     Indication: UNEVALUABLE EVENT
     Dosage: 3000 ML, UNK
     Route: 042
     Dates: start: 19991210
  15. SUFENTANIL [Concomitant]
     Dosage: UNK
     Dates: start: 19991210
  16. VIAGRA [Concomitant]
     Dosage: 100 MG, UNK
     Dates: start: 19990204
  17. PROTAMINE SULFATE [Concomitant]
     Indication: UNEVALUABLE EVENT
     Dosage: UNK
     Route: 042
     Dates: start: 19991210
  18. VANCOMYCIN [Concomitant]
     Dosage: UNK
     Dates: start: 19991210
  19. DECADRON [Concomitant]
     Dosage: UNK
     Dates: start: 19991210
  20. CAPTOPRIL [Concomitant]
     Dosage: 25 MG, UNK
     Route: 048
  21. PIROXICAM [Concomitant]
     Dosage: 20 MG, UNK
     Route: 048
  22. ACETYLSALICYLIC ACID SRT [Concomitant]
     Dosage: UNK
     Route: 048
     Dates: start: 19991208
  23. LASIX [Concomitant]
     Dosage: 40 MG, UNK
     Route: 048
  24. NORMOSOL [Concomitant]
     Indication: UNEVALUABLE EVENT
     Dosage: 2000 ML, UNK
     Route: 042
     Dates: start: 19991210

REACTIONS (12)
  - FEAR [None]
  - ANHEDONIA [None]
  - STRESS [None]
  - ANXIETY [None]
  - RENAL IMPAIRMENT [None]
  - UNEVALUABLE EVENT [None]
  - INJURY [None]
  - DEATH [None]
  - RENAL FAILURE [None]
  - EMOTIONAL DISTRESS [None]
  - PAIN [None]
  - RENAL INJURY [None]
